FAERS Safety Report 4681154-9 (Version None)
Quarter: 2005Q2

REPORT INFORMATION
  Report Type: 
  Country: None (occurrence: None)
  Receive Date: 20050602
  Receipt Date: 20050602
  Transmission Date: 20051028
  Serious: Yes (Disabling)
  Sender: FDA-Public Use
  Company Number: None

PATIENT
  Age: 72 Year
  Sex: Male
  Weight: 88.905 kg

DRUGS (2)
  1. VIAGRA [Suspect]
     Dosage: 1   AS NEEDED    ORAL
     Route: 048
     Dates: start: 20040102, end: 20050514
  2. CIALIS [Suspect]
     Dosage: 1    AS NEEDED    ORAL
     Route: 048
     Dates: start: 20050519, end: 20050525

REACTIONS (4)
  - ANGIOPATHY [None]
  - BLINDNESS [None]
  - OPTIC ATROPHY [None]
  - PAPILLITIS [None]
